FAERS Safety Report 5729599-X (Version None)
Quarter: 2008Q2

REPORT INFORMATION
  Report Type: 
  Country: None (occurrence: None)
  Receive Date: 20080506
  Receipt Date: 20080429
  Transmission Date: 20081010
  Serious: Yes (Hospitalization)
  Sender: FDA-Public Use
  Company Number: US-MERCK-0802USA01543

PATIENT
  Age: 85 Year
  Sex: Female

DRUGS (9)
  1. COZAAR [Suspect]
     Route: 048
     Dates: end: 20071120
  2. AMLODIPINE BESYLATE [Concomitant]
     Route: 048
  3. OMEPRAZOLE [Concomitant]
     Route: 048
  4. ATENOLOL [Concomitant]
     Route: 048
  5. PERCOCET [Concomitant]
     Route: 048
  6. AMITRIPTYLINE HYDROCHLORIDE [Concomitant]
     Route: 065
  7. AMITRIPTYLINE HYDROCHLORIDE [Concomitant]
     Route: 065
  8. DICLOFENAC [Concomitant]
     Route: 048
  9. TIMOLOL MALEATE [Concomitant]
     Route: 047

REACTIONS (5)
  - ANGIOEDEMA [None]
  - DRUG HYPERSENSITIVITY [None]
  - DYSPNOEA [None]
  - MUSCULOSKELETAL CHEST PAIN [None]
  - RASH [None]
